FAERS Safety Report 6750467-9 (Version None)
Quarter: 2010Q2

REPORT INFORMATION
  Report Type: 
  Country: None (occurrence: None)
  Receive Date: 20100601
  Receipt Date: 20100521
  Transmission Date: 20101027
  Serious: Yes (Death, Life-Threatening, Hospitalization)
  Sender: FDA-Public Use
  Company Number: JP-AMGEN-US399580

PATIENT
  Sex: Female
  Weight: 38 kg

DRUGS (10)
  1. ENBREL [Suspect]
     Indication: RHEUMATOID ARTHRITIS
     Route: 058
     Dates: start: 20090212, end: 20100302
  2. RHEUMATREX [Suspect]
     Indication: RHEUMATOID ARTHRITIS
     Dosage: UNSPECIFIED
     Route: 048
     Dates: start: 20090930, end: 20091028
  3. ALFAROL [Concomitant]
     Route: 048
     Dates: start: 20061031, end: 20100204
  4. ASPARA-CA [Concomitant]
     Route: 048
     Dates: start: 20061031, end: 20100302
  5. TAKEPRON [Concomitant]
     Route: 048
     Dates: start: 20061220, end: 20100302
  6. PROGRAF [Concomitant]
     Route: 048
     Dates: start: 20061220, end: 20090324
  7. PROGRAF [Concomitant]
     Route: 048
     Dates: start: 20090507, end: 20090701
  8. PRELONE [Concomitant]
     Route: 048
     Dates: end: 20100302
  9. LOXONIN [Concomitant]
     Route: 048
     Dates: start: 20060201, end: 20100302
  10. FOSAMAX [Concomitant]
     Route: 048
     Dates: start: 20081125, end: 20100204

REACTIONS (11)
  - ACUTE DISSEMINATED ENCEPHALOMYELITIS [None]
  - BLOOD PHOSPHORUS DECREASED [None]
  - BLOOD POTASSIUM DECREASED [None]
  - DEAFNESS BILATERAL [None]
  - DISSEMINATED INTRAVASCULAR COAGULATION [None]
  - LUMBAR SPINAL STENOSIS [None]
  - PLATELET COUNT DECREASED [None]
  - RENAL IMPAIRMENT [None]
  - TEMPERATURE INTOLERANCE [None]
  - TINNITUS [None]
  - URINARY TRACT INFECTION [None]
